FAERS Safety Report 9029521 (Version 1)
Quarter: 2013Q1

REPORT INFORMATION
  Report Type: Spontaneous
  Country: US (occurrence: US)
  Receive Date: 20130125
  Receipt Date: 20130125
  Transmission Date: 20140127
  Serious: No
  Sender: FDA-Public Use
  Company Number: US-009507513-1301USA009313

PATIENT
  Sex: Male

DRUGS (1)
  1. ASMANEX TWISTHALER [Suspect]
     Indication: COUGH
     Route: 055

REACTIONS (4)
  - Cough [Unknown]
  - Drug dose omission [Unknown]
  - Off label use [Unknown]
  - Product quality issue [Unknown]
